FAERS Safety Report 17570388 (Version 1)
Quarter: 2020Q1

REPORT INFORMATION
  Report Type: Spontaneous
  Country: US (occurrence: US)
  Receive Date: 20200316
  Receipt Date: 20200316
  Transmission Date: 20200409
  Serious: No
  Sender: FDA-Public Use
  Company Number: None

PATIENT
  Sex: Female

DRUGS (21)
  1. BUSPIRONE [Suspect]
     Active Substance: BUSPIRONE HYDROCHLORIDE
  2. DOXEPIN HCL [Concomitant]
     Active Substance: DOXEPIN HYDROCHLORIDE
  3. MIRTAZAPINE. [Concomitant]
     Active Substance: MIRTAZAPINE
  4. MAG OXIDE [Concomitant]
     Active Substance: MAGNESIUM OXIDE
  5. TRAODONE [Concomitant]
  6. CLOPIDOREL [Concomitant]
  7. LEVOTHYROXIN [Concomitant]
     Active Substance: LEVOTHYROXINE
  8. OXYCODONE [Concomitant]
     Active Substance: OXYCODONE
  9. IBUPROFEN. [Concomitant]
     Active Substance: IBUPROFEN
  10. NORTRIPTYLIN [Concomitant]
     Active Substance: NORTRIPTYLINE
  11. POT CL MICRO [Concomitant]
  12. VITAMIN D [Concomitant]
     Active Substance: VITAMIN D NOS
  13. FENOFIBRATE. [Concomitant]
     Active Substance: FENOFIBRATE
  14. HYDROCO/APAP [Concomitant]
     Active Substance: ACETAMINOPHEN\HYDROCODONE
  15. SOTALOL HCL [Concomitant]
     Active Substance: SOTALOL
  16. OCALIVA [Suspect]
     Active Substance: OBETICHOLIC ACID
     Indication: PRIMARY BILIARY CHOLANGITIS
     Dosage: ?          OTHER FREQUENCY:BIS;?
     Route: 048
     Dates: start: 20171102
  17. AMOXICILLIN. [Concomitant]
     Active Substance: AMOXICILLIN
  18. KETOCONAZOLE. [Concomitant]
     Active Substance: KETOCONAZOLE
  19. ASPIRIN. [Concomitant]
     Active Substance: ASPIRIN
  20. FEXOFENADINE [Concomitant]
     Active Substance: FEXOFENADINE HYDROCHLORIDE
  21. NYSTOP [Concomitant]
     Active Substance: NYSTATIN

REACTIONS (1)
  - Constipation [None]
